FAERS Safety Report 16303127 (Version 1)
Quarter: 2019Q2

REPORT INFORMATION
  Report Type: Spontaneous
  Country: US (occurrence: US)
  Receive Date: 20190513
  Receipt Date: 20190513
  Transmission Date: 20190711
  Serious: Yes (Other)
  Sender: FDA-Public Use
  Company Number: US-GW PHARMA-201905USGW1346

PATIENT

DRUGS (1)
  1. EPIDIOLEX [Suspect]
     Active Substance: CANNABIDIOL
     Indication: EPILEPSY
     Dosage: 20.62 MG/KG, 1000 MILLIGRAM, BID
     Route: 048
     Dates: start: 20190226

REACTIONS (1)
  - Tongue disorder [Unknown]

NARRATIVE: CASE EVENT DATE: 2019
